FAERS Safety Report 14687879 (Version 1)
Quarter: 2018Q1

REPORT INFORMATION
  Report Type: Spontaneous
  Country: US (occurrence: US)
  Receive Date: 20180328
  Receipt Date: 20180328
  Transmission Date: 20180509
  Serious: Yes (Hospitalization, Other)
  Sender: FDA-Public Use
  Company Number: US-OREXO US, INC.-ORE201803-000023

PATIENT
  Sex: Female
  Weight: 65.83 kg

DRUGS (1)
  1. ZUBSOLV [Suspect]
     Active Substance: BUPRENORPHINE HYDROCHLORIDE\NALOXONE HYDROCHLORIDE
     Indication: PRODUCT USED FOR UNKNOWN INDICATION
     Dosage: 11.4 MG

REACTIONS (12)
  - Exposure during pregnancy [Unknown]
  - Dyskinesia [Not Recovered/Not Resolved]
  - Abortion spontaneous [Unknown]
  - Tongue movement disturbance [Not Recovered/Not Resolved]
  - Fear [Unknown]
  - Depression [Unknown]
  - Disorientation [Not Recovered/Not Resolved]
  - Speech disorder [Not Recovered/Not Resolved]
  - Muscle twitching [Not Recovered/Not Resolved]
  - Insomnia [Not Recovered/Not Resolved]
  - Memory impairment [Unknown]
  - Abnormal behaviour [Unknown]
